FAERS Safety Report 6451740-4 (Version None)
Quarter: 2009Q4

REPORT INFORMATION
  Report Type: 
  Country: None (occurrence: None)
  Receive Date: 20091120
  Receipt Date: 20091120
  Transmission Date: 20100525
  Serious: No
  Sender: FDA-Public Use
  Company Number: None

PATIENT
  Age: 55 Year
  Sex: Male
  Weight: 79.9 kg

DRUGS (2)
  1. INSULIN [Suspect]
     Dosage: 30 UNITS BID SQ UNITS SLIDING SCALE SQ
     Route: 058
     Dates: start: 20091113
  2. INSULIN [Suspect]
     Dosage: 30 UNITS BID SQ UNITS SLIDING SCALE SQ
     Route: 058
     Dates: start: 20091114

REACTIONS (1)
  - HYPOGLYCAEMIA [None]
